FAERS Safety Report 4570543-9 (Version None)
Quarter: 2005Q1

REPORT INFORMATION
  Report Type: 
  Country: None (occurrence: None)
  Receive Date: 20050204
  Receipt Date: 20041122
  Transmission Date: 20050727
  Serious: Yes (Death)
  Sender: FDA-Public Use
  Company Number: PHHO2004CA16635

PATIENT
  Age: 63 Year
  Sex: Male
  Weight: 63 kg

DRUGS (7)
  1. NEURONTIN [Concomitant]
  2. LARGACTIL [Concomitant]
  3. VITAMIN B COMPLEX CAP [Concomitant]
  4. COLACE [Concomitant]
  5. SENOKOT [Concomitant]
  6. OMEGA [Concomitant]
  7. CLOZARIL [Suspect]
     Dosage: 600 MG / DAY
     Route: 048
     Dates: start: 20000808

REACTIONS (4)
  - BALANCE DISORDER [None]
  - DECREASED APPETITE [None]
  - FALL [None]
  - INFARCTION [None]
